FAERS Safety Report 13088596 (Version 1)
Quarter: 2016Q4

REPORT INFORMATION
  Report Type: Spontaneous
  Country: US (occurrence: US)
  Receive Date: 20161230
  Receipt Date: 20161230
  Transmission Date: 20170207
  Serious: Yes (Hospitalization)
  Sender: FDA-Public Use
  Company Number: None

PATIENT
  Age: 74 Year
  Sex: Male
  Weight: 71.1 kg

DRUGS (1)
  1. HALOPERIDOL. [Suspect]
     Active Substance: HALOPERIDOL
     Indication: SCHIZOPHRENIA
     Route: 030
     Dates: start: 20161010, end: 20161010

REACTIONS (4)
  - Mental status changes [None]
  - Seizure [None]
  - Somnolence [None]
  - Infection [None]

NARRATIVE: CASE EVENT DATE: 20161011
